FAERS Safety Report 5991926-6 (Version None)
Quarter: 2008Q4

REPORT INFORMATION
  Report Type: 
  Country: None (occurrence: None)
  Receive Date: 20081202
  Receipt Date: 20080728
  Transmission Date: 20090506
  Serious: Yes (Disabling)
  Sender: FDA-Public Use
  Company Number: WAES 98020258

PATIENT
  Age: 81 Year
  Sex: Female

DRUGS (4)
  1. FOSAMAX [Suspect]
     Indication: OSTEOPOROSIS
     Dosage: PO
     Route: 048
     Dates: start: 19990101, end: 20080707
  2. FOSAMAX [Suspect]
     Indication: OSTEOPOROSIS
     Dosage: 70 MG/WKY/PO
     Route: 048
     Dates: start: 20080707
  3. AMLODIPINE BESYLATE [Concomitant]
  4. ATENOLOL [Concomitant]

REACTIONS (9)
  - ARTHRALGIA [None]
  - BONE PAIN [None]
  - COUGH [None]
  - MUSCULOSKELETAL PAIN [None]
  - MYALGIA [None]
  - OROPHARYNGEAL PAIN [None]
  - PAIN IN EXTREMITY [None]
  - PRODUCTIVE COUGH [None]
  - SINUSITIS [None]
